FAERS Safety Report 6307679-8 (Version None)
Quarter: 2009Q3

REPORT INFORMATION
  Report Type: 
  Country: None (occurrence: None)
  Receive Date: 20090813
  Receipt Date: 20090804
  Transmission Date: 20100115
  Serious: Yes (Hospitalization, Other)
  Sender: FDA-Public Use
  Company Number: PHEH2009US08732

PATIENT
  Age: 73 Year
  Sex: Male
  Weight: 77 kg

DRUGS (10)
  1. AREDIA [Interacting]
  2. VELCADE [Interacting]
     Indication: MULTIPLE MYELOMA
     Dosage: 1.3 MG/M2
     Dates: start: 20090406
  3. MELPHALAN HYDROCHLORIDE [Suspect]
     Indication: MULTIPLE MYELOMA
     Dosage: UNK
     Dates: start: 20090406
  4. PREDNISONE [Suspect]
     Indication: MULTIPLE MYELOMA
     Dosage: UNK
     Dates: start: 20090406
  5. COUMADIN [Concomitant]
  6. ATENOLOL [Concomitant]
  7. DIGOXIN [Concomitant]
  8. ALTACE [Concomitant]
  9. FLOMAX [Concomitant]
  10. ASPIRIN [Concomitant]

REACTIONS (3)
  - AMNESIA [None]
  - CONFUSIONAL STATE [None]
  - PYREXIA [None]
